FAERS Safety Report 8250239-2 (Version None)
Quarter: 2012Q2

REPORT INFORMATION
  Report Type: 
  Country: None (occurrence: None)
  Receive Date: 20120402
  Receipt Date: 20120319
  Transmission Date: 20120825
  Serious: Yes (Hospitalization)
  Sender: FDA-Public Use
  Company Number: US-RANBAXY-2012US-54212

PATIENT
  Age: 49 Year
  Sex: Male

DRUGS (2)
  1. GLYBURIDE [Suspect]
     Indication: PRODUCT USED FOR UNKNOWN INDICATION
     Dosage: UNK
     Route: 048
  2. METFORMIN HCL [Suspect]
     Indication: PRODUCT USED FOR UNKNOWN INDICATION
     Dosage: UNK
     Route: 048

REACTIONS (14)
  - LACTIC ACIDOSIS [None]
  - THROMBOCYTOPENIA [None]
  - HYPERNATRAEMIA [None]
  - HYPOGLYCAEMIA [None]
  - STAPHYLOCOCCAL INFECTION [None]
  - HYPOTENSION [None]
  - SUICIDE ATTEMPT [None]
  - LEUKOCYTOSIS [None]
  - HYPERGLYCAEMIA [None]
  - ALPHA HAEMOLYTIC STREPTOCOCCAL INFECTION [None]
  - INTENTIONAL OVERDOSE [None]
  - RENAL FAILURE ACUTE [None]
  - OTITIS EXTERNA [None]
  - NECROSIS [None]
